FAERS Safety Report 23252429 (Version 1)
Quarter: 2023Q4

REPORT INFORMATION
  Report Type: Spontaneous
  Country: US (occurrence: None)
  Receive Date: 20231201
  Receipt Date: 20231201
  Transmission Date: 20240110
  Serious: Yes (Hospitalization)
  Sender: FDA-Public Use
  Company Number: None

PATIENT
  Age: 76 Year
  Sex: Male
  Weight: 78.9 kg

DRUGS (1)
  1. APIXABAN [Suspect]
     Active Substance: APIXABAN
     Dosage: FREQUENCY : TWICE A DAY;?
     Route: 048
     Dates: start: 20230412, end: 20230821

REACTIONS (7)
  - Gastrointestinal haemorrhage [None]
  - Dizziness [None]
  - Blood pressure orthostatic decreased [None]
  - Melaena [None]
  - Haemoglobin decreased [None]
  - Therapy interrupted [None]
  - Haemorrhage [None]

NARRATIVE: CASE EVENT DATE: 20230821
